FAERS Safety Report 13033957 (Version 1)
Quarter: 2016Q4

REPORT INFORMATION
  Report Type: Spontaneous
  Country: US (occurrence: US)
  Receive Date: 20161216
  Receipt Date: 20161216
  Transmission Date: 20170207
  Serious: Yes (Other)
  Sender: FDA-Public Use
  Company Number: US-ASTRAZENECA-2016SF32383

PATIENT
  Sex: Female

DRUGS (4)
  1. SYNTHROID [Concomitant]
     Active Substance: LEVOTHYROXINE SODIUM
     Indication: THYROID DISORDER
     Route: 048
  2. FORXIGA [Suspect]
     Active Substance: DAPAGLIFLOZIN
     Indication: DIABETES MELLITUS
     Route: 048
  3. TOFACITINIB [Suspect]
     Active Substance: TOFACITINIB
     Indication: RHEUMATOID ARTHRITIS
     Route: 048
  4. MICARDIS HCT [Concomitant]
     Active Substance: HYDROCHLOROTHIAZIDE\TELMISARTAN
     Indication: BLOOD PRESSURE MEASUREMENT
     Dosage: 80MG/25MG ONCE DAILY
     Dates: start: 201608

REACTIONS (13)
  - Headache [Recovered/Resolved]
  - Malaise [Unknown]
  - Eye disorder [Unknown]
  - Memory impairment [Unknown]
  - Hypotension [Unknown]
  - Swelling [Unknown]
  - Abdominal distension [Unknown]
  - Feeling abnormal [Unknown]
  - Glycosylated haemoglobin increased [Unknown]
  - Blood calcium increased [Unknown]
  - Pollakiuria [Unknown]
  - Vitamin D decreased [Unknown]
  - Abdominal pain upper [Unknown]
